FAERS Safety Report 8297551 (Version 8)
Quarter: 2014Q4

REPORT INFORMATION
  Report Type: Spontaneous
  Country: CZ (occurrence: CZ)
  Receive Date: 20111219
  Receipt Date: 20141219
  Transmission Date: 20150529
  Serious: Yes (Death, Life-Threatening, Hospitalization, Other)
  Sender: FDA-Public Use
  Company Number: CZ-BIOGENIDEC-2011BI046871

PATIENT
  Age: 46 Year
  Sex: Female

DRUGS (2)
  1. DEPAKINE CHRONO [Concomitant]
     Active Substance: VALPROATE SODIUM
  2. TYSABRI [Suspect]
     Active Substance: NATALIZUMAB
     Indication: MULTIPLE SCLEROSIS
     Route: 042
     Dates: start: 20090506, end: 20111116

REACTIONS (3)
  - Immune reconstitution inflammatory syndrome [Unknown]
  - Pneumonia [Fatal]
  - Progressive multifocal leukoencephalopathy [Unknown]

NARRATIVE: CASE EVENT DATE: 20111208
